FAERS Safety Report 9240274 (Version 1)
Quarter: 2013Q2

REPORT INFORMATION
  Report Type: Spontaneous
  Country: US (occurrence: None)
  Receive Date: 20130418
  Receipt Date: 20130418
  Transmission Date: 20140414
  Serious: Yes (Hospitalization)
  Sender: FDA-Public Use
  Company Number: None

PATIENT
  Age: 39 Year
  Sex: Female
  Weight: 161.03 kg

DRUGS (1)
  1. ICATIBANT [Suspect]

REACTIONS (2)
  - Gastrointestinal haemorrhage [None]
  - Intestinal ischaemia [None]
